FAERS Safety Report 21521162 (Version 1)
Quarter: 2022Q4

REPORT INFORMATION
  Report Type: Report from Study
  Country: PK (occurrence: PK)
  Receive Date: 20221028
  Receipt Date: 20221028
  Transmission Date: 20230112
  Serious: Yes (Other)
  Sender: FDA-Public Use
  Company Number: PK-NOVARTISPH-NVSC2019PK079599

PATIENT
  Age: 63 Year
  Sex: Male

DRUGS (5)
  1. INDACATEROL [Suspect]
     Active Substance: INDACATEROL
     Indication: Chronic obstructive pulmonary disease
     Dosage: 0.150 MG
     Route: 048
     Dates: start: 20160708
  2. INDACATEROL [Suspect]
     Active Substance: INDACATEROL
     Dosage: 0.150 MG
     Route: 048
     Dates: start: 20191215
  3. INDACATEROL [Suspect]
     Active Substance: INDACATEROL
     Dosage: 0.3 MG
     Route: 065
  4. INDACATEROL [Suspect]
     Active Substance: INDACATEROL
     Dosage: 300 MG
     Route: 065
  5. SERETIDE [Concomitant]
     Active Substance: FLUTICASONE PROPIONATE\SALMETEROL XINAFOATE
     Indication: Product used for unknown indication
     Route: 065

REACTIONS (6)
  - Lower respiratory tract infection [Unknown]
  - Dyspnoea [Unknown]
  - Cough [Unknown]
  - Chest pain [Unknown]
  - Pyrexia [Unknown]
  - Drug ineffective [Not Recovered/Not Resolved]

NARRATIVE: CASE EVENT DATE: 20191201
